FAERS Safety Report 5134558-4 (Version None)
Quarter: 2006Q4

REPORT INFORMATION
  Report Type: 
  Country: None (occurrence: None)
  Receive Date: 20061019
  Receipt Date: 20061012
  Transmission Date: 20070319
  Serious: Yes (Death, Hospitalization)
  Sender: FDA-Public Use
  Company Number: 163-20785-06091020

PATIENT
  Age: 76 Year
  Sex: Male

DRUGS (2)
  1. THALOMID [Suspect]
     Indication: MYELOFIBROSIS
     Dosage: 50 MG, 1 IN 1 D, ORAL
     Route: 048
     Dates: start: 20060830, end: 20060922
  2. PREDNISONE TAB [Concomitant]

REACTIONS (4)
  - HAEMOGLOBIN DECREASED [None]
  - PLATELET COUNT DECREASED [None]
  - PNEUMONIA [None]
  - WHITE BLOOD CELL COUNT DECREASED [None]
